FAERS Safety Report 8550065-0 (Version None)
Quarter: 2012Q3

REPORT INFORMATION
  Report Type: 
  Country: None (occurrence: None)
  Receive Date: 20120730
  Receipt Date: 20120724
  Transmission Date: 20120928
  Serious: No
  Sender: FDA-Public Use
  Company Number: US-PFIZER INC-2012170827

PATIENT
  Sex: Female

DRUGS (2)
  1. TAMOXIFEN CITRATE [Suspect]
     Indication: BREAST CANCER
     Dosage: UNK
  2. AROMASIN [Suspect]
     Indication: BREAST CANCER
     Dosage: UNK

REACTIONS (3)
  - DISEASE PROGRESSION [None]
  - BREAST CANCER [None]
  - METASTASES TO LIVER [None]
